FAERS Safety Report 9619559 (Version 2)
Quarter: 2013Q4

REPORT INFORMATION
  Report Type: Spontaneous
  Country: US (occurrence: US)
  Receive Date: 20131014
  Receipt Date: 20131108
  Transmission Date: 20140711
  Serious: No
  Sender: FDA-Public Use
  Company Number: US-009507513-1310USA006032

PATIENT
  Age: 55 Year
  Sex: Female
  Weight: 59.41 kg

DRUGS (2)
  1. CLARITIN REDITABS [Suspect]
     Indication: SEASONAL ALLERGY
     Dosage: 10 MG, QAM
     Route: 048
     Dates: start: 20131002, end: 20131003
  2. CLARITIN REDITABS [Suspect]
     Indication: SINUS CONGESTION

REACTIONS (7)
  - Epistaxis [Recovered/Resolved]
  - Headache [Recovered/Resolved]
  - Nervousness [Recovered/Resolved]
  - Fatigue [Recovered/Resolved]
  - Feeling abnormal [Recovered/Resolved]
  - Insomnia [Recovered/Resolved]
  - Drug ineffective for unapproved indication [Unknown]
